FAERS Safety Report 7927819-4 (Version None)
Quarter: 2011Q4

REPORT INFORMATION
  Report Type: 
  Country: None (occurrence: None)
  Receive Date: 20111118
  Receipt Date: 20111109
  Transmission Date: 20120403
  Serious: Yes (Hospitalization)
  Sender: FDA-Public Use
  Company Number: US-PERRIGO-11US009918

PATIENT
  Age: 22 Year
  Sex: Female

DRUGS (1)
  1. ACETAMINOPHEN [Suspect]
     Indication: PRODUCT USED FOR UNKNOWN INDICATION
     Dosage: 15 G, SINGLE
     Route: 048

REACTIONS (8)
  - INTRACRANIAL PRESSURE INCREASED [None]
  - COMA [None]
  - ACUTE HEPATIC FAILURE [None]
  - INTENTIONAL OVERDOSE [None]
  - NAUSEA [None]
  - ENCEPHALOPATHY [None]
  - BRAIN OEDEMA [None]
  - HYPERAMMONAEMIA [None]
